FAERS Safety Report 7444814-2 (Version None)
Quarter: 2011Q2

REPORT INFORMATION
  Report Type: 
  Country: None (occurrence: None)
  Receive Date: 20110427
  Receipt Date: 20110427
  Transmission Date: 20111010
  Serious: Yes (Hospitalization)
  Sender: FDA-Public Use
  Company Number: None

PATIENT
  Age: 82 Year
  Sex: Male
  Weight: 81 kg

DRUGS (1)
  1. DIGOXIN [Suspect]
     Dosage: 0.25 MG EVERY DAY PO
     Route: 048
     Dates: start: 20100227, end: 20101013

REACTIONS (4)
  - BRADYCARDIA [None]
  - TOXICITY TO VARIOUS AGENTS [None]
  - DIZZINESS [None]
  - LETHARGY [None]
